FAERS Safety Report 7892479-8 (Version None)
Quarter: 2011Q4

REPORT INFORMATION
  Report Type: 
  Country: None (occurrence: None)
  Receive Date: 20111104
  Receipt Date: 20111027
  Transmission Date: 20120403
  Serious: Yes (Hospitalization)
  Sender: FDA-Public Use
  Company Number: US-JNJFOC-20111012399

PATIENT
  Sex: Male
  Weight: 45.36 kg

DRUGS (2)
  1. GUANFACINE HYDROCHLORIDE [Suspect]
     Indication: APPETITE DISORDER
     Route: 048
  2. CONCERTA [Suspect]
     Indication: ATTENTION DEFICIT/HYPERACTIVITY DISORDER
     Route: 048
     Dates: end: 20110101

REACTIONS (5)
  - CARDIAC VALVE DISEASE [None]
  - IRRITABILITY [None]
  - CHEST PAIN [None]
  - CARDIAC MURMUR [None]
  - AGITATION [None]
